FAERS Safety Report 14645006 (Version 1)
Quarter: 2018Q1

REPORT INFORMATION
  Report Type: Report from Study
  Country: DE (occurrence: DE)
  Receive Date: 20180315
  Receipt Date: 20180315
  Transmission Date: 20180509
  Serious: Yes (Life-Threatening, Hospitalization)
  Sender: FDA-Public Use
  Company Number: DE-ELI_LILLY_AND_COMPANY-DE201803004016

PATIENT
  Age: 74 Year
  Sex: Male
  Weight: 87 kg

DRUGS (8)
  1. GRANISETRON [Concomitant]
     Active Substance: GRANISETRON
     Indication: BRONCHIAL CARCINOMA
     Dosage: 1 MG, UNK
     Route: 048
     Dates: start: 20150625
  2. AVASTIN [Suspect]
     Active Substance: BEVACIZUMAB
     Indication: BRONCHIAL CARCINOMA
     Dosage: 7.5 MG/KG, EVERY 22 DAYS
     Route: 042
     Dates: start: 20150806, end: 20151008
  3. DIAZEPAM. [Concomitant]
     Active Substance: DIAZEPAM
     Indication: BRONCHIAL CARCINOMA
     Dosage: 5 MG, DAILY
     Route: 048
     Dates: start: 20150625
  4. CARBOPLATIN. [Suspect]
     Active Substance: CARBOPLATIN
     Indication: BRONCHIAL CARCINOMA
     Dosage: 475 MG, EVERY 22 DAYS
     Route: 042
     Dates: start: 20150625
  5. DEXAMETHASONE. [Concomitant]
     Active Substance: DEXAMETHASONE
     Indication: BRONCHIAL CARCINOMA
     Dosage: 8 MG, UNK
     Route: 048
     Dates: start: 20150625
  6. PEMETREXED. [Suspect]
     Active Substance: PEMETREXED
     Indication: BRONCHIAL CARCINOMA
     Dosage: 1035 MG, EVERY 22 DAYS
     Route: 042
     Dates: start: 20150625
  7. CISPLATIN. [Suspect]
     Active Substance: CISPLATIN
     Indication: BRONCHIAL CARCINOMA
     Dosage: 155 MG, EVERY 22 DAYS
     Route: 042
     Dates: start: 20150625
  8. APREPITANT. [Concomitant]
     Active Substance: APREPITANT
     Indication: BRONCHIAL CARCINOMA
     Dosage: 80 MG, UNK
     Route: 048
     Dates: start: 20150625

REACTIONS (3)
  - Transient ischaemic attack [Recovered/Resolved]
  - Pneumonia [Recovered/Resolved]
  - Ileus [Recovered/Resolved]

NARRATIVE: CASE EVENT DATE: 20150708
